FAERS Safety Report 18187139 (Version 3)
Quarter: 2020Q4

REPORT INFORMATION
  Report Type: Report from Study
  Country: JP (occurrence: JP)
  Receive Date: 20200824
  Receipt Date: 20201214
  Transmission Date: 20210113
  Serious: No
  Sender: FDA-Public Use
  Company Number: JP-ASTRAZENECA-2020SF05339

PATIENT
  Age: 71 Year
  Sex: Female

DRUGS (1)
  1. TAGRISSO [Suspect]
     Active Substance: OSIMERTINIB
     Indication: NON-SMALL CELL LUNG CANCER
     Route: 048
     Dates: start: 20200124

REACTIONS (5)
  - Xeroderma [Unknown]
  - Paronychia [Unknown]
  - Rash erythematous [Unknown]
  - Diarrhoea [Unknown]
  - Hepatic function abnormal [Unknown]

NARRATIVE: CASE EVENT DATE: 20200130
